FAERS Safety Report 6147659-9 (Version None)
Quarter: 2009Q2

REPORT INFORMATION
  Report Type: 
  Country: None (occurrence: None)
  Receive Date: 20090408
  Receipt Date: 20090330
  Transmission Date: 20091009
  Serious: Yes (Other)
  Sender: FDA-Public Use
  Company Number: PHHY2009CA11755

PATIENT
  Sex: Female

DRUGS (3)
  1. DESFERAL [Suspect]
     Indication: IRON OVERLOAD
     Dosage: 2500 MG , 4 DAYS PER WEEK
     Route: 058
     Dates: start: 20010501, end: 20060701
  2. DESFERAL [Suspect]
     Indication: MYELOFIBROSIS
     Dosage: UNK
     Route: 058
     Dates: start: 20060619, end: 20060620
  3. DESFERAL [Suspect]
     Indication: HEREDITARY HAEMOCHROMATOSIS
     Dosage: UNK
     Route: 058
     Dates: start: 20060725

REACTIONS (9)
  - APPLICATION SITE INFLAMMATION [None]
  - CHILLS [None]
  - DIARRHOEA [None]
  - INJECTION SITE ERYTHEMA [None]
  - INJECTION SITE INFECTION [None]
  - INJECTION SITE INFLAMMATION [None]
  - NAUSEA [None]
  - PYREXIA [None]
  - VOMITING [None]
